FAERS Safety Report 20384034 (Version 7)
Quarter: 2023Q4

REPORT INFORMATION
  Report Type: Report from Study
  Country: US (occurrence: US)
  Receive Date: 20220127
  Receipt Date: 20231201
  Transmission Date: 20240110
  Serious: Yes (Hospitalization, Other)
  Sender: FDA-Public Use
  Company Number: US-TAKEDA-2021TUS049248

PATIENT
  Age: 51 Year
  Sex: Female
  Weight: 63 kg

DRUGS (73)
  1. HUMAN IMMUNOGLOBULIN G [Suspect]
     Active Substance: HUMAN IMMUNOGLOBULIN G
     Indication: Immunodeficiency common variable
     Dosage: 14 GRAM, 1/WEEK
     Route: 058
     Dates: start: 20210721
  2. TAKHZYRO [Suspect]
     Active Substance: LANADELUMAB-FLYO
     Indication: Immune system disorder
     Dosage: 300 MILLIGRAM, Q2WEEKS
     Route: 058
     Dates: start: 20230913
  3. ACETAMINOPHEN [Concomitant]
     Active Substance: ACETAMINOPHEN
     Route: 065
  4. DIPHENHYDRAMINE [Concomitant]
     Active Substance: DIPHENHYDRAMINE
     Route: 065
  5. FAMOTIDINE [Concomitant]
     Active Substance: FAMOTIDINE
     Route: 065
  6. HEPARIN [Concomitant]
     Active Substance: HEPARIN SODIUM
     Route: 065
  7. METHYLPREDNISOLONE [Concomitant]
     Active Substance: METHYLPREDNISOLONE
     Route: 065
  8. Lmx [Concomitant]
  9. ZOFRAN [Concomitant]
     Active Substance: ONDANSETRON HYDROCHLORIDE
     Route: 065
  10. MUPIROCIN [Concomitant]
     Active Substance: MUPIROCIN
     Route: 065
  11. SODIUM CHLORIDE [Concomitant]
     Active Substance: SODIUM CHLORIDE
     Route: 065
  12. ALBUTEROL [Concomitant]
     Active Substance: ALBUTEROL
  13. EPINEPHRINE [Concomitant]
     Active Substance: EPINEPHRINE
     Route: 065
  14. DEPO-MEDROL [Concomitant]
     Active Substance: METHYLPREDNISOLONE ACETATE
  15. ZITHROMAX [Concomitant]
     Active Substance: AZITHROMYCIN DIHYDRATE
  16. NICKEL [Concomitant]
     Active Substance: NICKEL
  17. NEURONTIN [Concomitant]
     Active Substance: GABAPENTIN
  18. LYRICA [Concomitant]
     Active Substance: PREGABALIN
  19. ATENOLOL [Concomitant]
     Active Substance: ATENOLOL
  20. PENICILLIN [Concomitant]
     Active Substance: PENICILLIN
  21. CARDIZEM [Concomitant]
     Active Substance: DILTIAZEM HYDROCHLORIDE
  22. SAPHRIS [Concomitant]
     Active Substance: ASENAPINE MALEATE
  23. MOBIC [Concomitant]
     Active Substance: MELOXICAM
  24. PHENERGAN [Concomitant]
     Active Substance: PROMETHAZINE HYDROCHLORIDE
  25. CLINDAMYCIN [Concomitant]
     Active Substance: CLINDAMYCIN
  26. TRAZODONE [Concomitant]
     Active Substance: TRAZODONE HYDROCHLORIDE
  27. TIGAN [Concomitant]
     Active Substance: TRIMETHOBENZAMIDE HYDROCHLORIDE
  28. METRONIDAZOLE [Concomitant]
     Active Substance: METRONIDAZOLE
  29. TETRACYCLINE [Concomitant]
     Active Substance: TETRACYCLINE
  30. ERYTHROMYCIN [Concomitant]
     Active Substance: ERYTHROMYCIN
  31. CEFAZOLIN [Concomitant]
     Active Substance: CEFAZOLIN
  32. SULFAMETHOXAZOLE [Concomitant]
     Active Substance: SULFAMETHOXAZOLE
  33. DOXYCYCLINE [Concomitant]
     Active Substance: DOXYCYCLINE
  34. CLARITHROMYCIN [Concomitant]
     Active Substance: CLARITHROMYCIN
  35. COMPAZINE [Concomitant]
     Active Substance: PROCHLORPERAZINE MALEATE
  36. CROMOLYN [Concomitant]
     Active Substance: CROMOLYN
  37. ESMOLOL [Concomitant]
     Active Substance: ESMOLOL HYDROCHLORIDE
  38. AZELASTINE [Concomitant]
     Active Substance: AZELASTINE\AZELASTINE HYDROCHLORIDE
  39. DEXILANT [Concomitant]
     Active Substance: DEXLANSOPRAZOLE
  40. COLACE [Concomitant]
     Active Substance: DOCUSATE SODIUM
  41. SODIUM CHLORIDE [Concomitant]
     Active Substance: SODIUM CHLORIDE
     Route: 065
  42. QVAR [Concomitant]
     Active Substance: BECLOMETHASONE DIPROPIONATE
     Route: 065
  43. VYVANSE [Concomitant]
     Active Substance: LISDEXAMFETAMINE DIMESYLATE
     Route: 065
  44. VITAMIN D3 [Concomitant]
     Active Substance: CHOLECALCIFEROL
     Route: 065
  45. IPRATROPIUM BROMIDE [Concomitant]
     Active Substance: IPRATROPIUM BROMIDE\IPRATROPIUM BROMIDE ANHYDROUS
     Route: 065
  46. PULMICORT TURBUHALER [Concomitant]
     Active Substance: BUDESONIDE
     Route: 065
  47. LEVOTHYROXINE SODIUM [Concomitant]
     Active Substance: LEVOTHYROXINE SODIUM
     Route: 065
  48. ALBUTEROL SULFATE [Concomitant]
     Active Substance: ALBUTEROL SULFATE
     Route: 065
  49. MELATONIN [Concomitant]
     Active Substance: MELATONIN
     Route: 065
  50. BUPROPION [Concomitant]
     Active Substance: BUPROPION
     Route: 065
  51. ALLEGRA [Concomitant]
     Active Substance: FEXOFENADINE HYDROCHLORIDE
     Route: 065
  52. DILAUDID [Concomitant]
     Active Substance: HYDROMORPHONE HYDROCHLORIDE
     Route: 065
  53. TYLENOL EXTRA STRENGTH [Concomitant]
     Active Substance: ACETAMINOPHEN
  54. KEFLEX [Concomitant]
     Active Substance: CEPHALEXIN
  55. CEFDINIR [Concomitant]
     Active Substance: CEFDINIR
  56. CEPHALEXIN [Concomitant]
     Active Substance: CEPHALEXIN
  57. DIPHENHYDRAMINE HYDROCHLORIDE [Concomitant]
     Active Substance: DIPHENHYDRAMINE HYDROCHLORIDE
  58. BENADRYL [Concomitant]
     Active Substance: DIPHENHYDRAMINE HYDROCHLORIDE
  59. PLAVIX [Concomitant]
     Active Substance: CLOPIDOGREL BISULFATE
  60. LIPITOR [Concomitant]
     Active Substance: ATORVASTATIN CALCIUM
  61. TYLENOL [Concomitant]
     Active Substance: ACETAMINOPHEN
  62. QVAR REDIHALER [Concomitant]
     Active Substance: BECLOMETHASONE DIPROPIONATE
  63. MAGNESIUM OXIDE [Concomitant]
     Active Substance: MAGNESIUM OXIDE
     Route: 065
  64. PEPCID [Concomitant]
     Active Substance: FAMOTIDINE
     Dosage: UNK
     Route: 065
  65. SOLU-MEDROL [Concomitant]
     Active Substance: METHYLPREDNISOLONE SODIUM SUCCINATE
     Dosage: UNK
     Route: 065
  66. AMLODIPINE BESYLATE [Concomitant]
     Active Substance: AMLODIPINE BESYLATE
     Dosage: UNK
     Route: 065
  67. HORIZANT [Concomitant]
     Active Substance: GABAPENTIN ENACARBIL
     Dosage: UNK
     Route: 065
  68. TRIAMCINOLONE [Concomitant]
     Active Substance: TRIAMCINOLONE
  69. SENNA [Concomitant]
     Active Substance: SENNA LEAF\SENNOSIDES\SENNOSIDES A AND B
  70. PROAIR DIGIHALER [Concomitant]
     Active Substance: ALBUTEROL SULFATE
  71. FEXOFENADINE HYDROCHLORIDE [Concomitant]
     Active Substance: FEXOFENADINE HYDROCHLORIDE
  72. ASPIRIN [Concomitant]
     Active Substance: ASPIRIN
  73. FLUTICASONE [Concomitant]
     Active Substance: FLUTICASONE

REACTIONS (16)
  - Complication associated with device [Unknown]
  - Cellulitis [Unknown]
  - Infection [Unknown]
  - Middle ear effusion [Unknown]
  - Sinus disorder [Unknown]
  - Road traffic accident [Unknown]
  - Upper respiratory tract infection [Unknown]
  - Gastrointestinal disorder [Unknown]
  - Device infusion issue [Unknown]
  - Device leakage [Unknown]
  - Sinusitis [Unknown]
  - Infusion site mass [Unknown]
  - Infusion site discharge [Unknown]
  - Swelling [Unknown]
  - Pyrexia [Unknown]
  - Incorrect dose administered [Unknown]

NARRATIVE: CASE EVENT DATE: 20211108
